FAERS Safety Report 5892680-9 (Version None)
Quarter: 2008Q3

REPORT INFORMATION
  Report Type: 
  Country: None (occurrence: None)
  Receive Date: 20080923
  Receipt Date: 20080916
  Transmission Date: 20090109
  Serious: Yes (Other)
  Sender: FDA-Public Use
  Company Number: PHHY2008AR21572

PATIENT
  Age: 81 Year
  Sex: Male

DRUGS (2)
  1. ZOMETA [Suspect]
     Indication: METASTASES TO BONE
     Dosage: 1 AMP PER MONTH
     Dates: start: 20040101, end: 20080901
  2. ZOMETA [Suspect]
     Indication: PROSTATE CANCER

REACTIONS (2)
  - HIP FRACTURE [None]
  - OSTEONECROSIS [None]
